FAERS Safety Report 7039130-7 (Version None)
Quarter: 2010Q4

REPORT INFORMATION
  Report Type: 
  Country: None (occurrence: None)
  Receive Date: 20101012
  Receipt Date: 20101001
  Transmission Date: 20110411
  Serious: Yes (Hospitalization)
  Sender: FDA-Public Use
  Company Number: IT-BAXTER-2010BH020020

PATIENT
  Age: 51 Year
  Sex: Female

DRUGS (5)
  1. ALBUMIN (HUMAN) [Suspect]
     Indication: HYPOALBUMINAEMIA
     Route: 042
     Dates: start: 20100402, end: 20100408
  2. PARIET [Concomitant]
     Route: 048
     Dates: start: 20100331, end: 20100408
  3. EUTIROX [Concomitant]
     Route: 048
     Dates: start: 20100331, end: 20100408
  4. POTASSIUM CHLORIDE [Concomitant]
     Route: 048
     Dates: start: 20100402, end: 20100408
  5. DIFLUCAN [Concomitant]
     Route: 042
     Dates: start: 20100406, end: 20100408

REACTIONS (5)
  - ABDOMINAL PAIN [None]
  - DYSPNOEA [None]
  - ERYTHEMA [None]
  - HYPOTENSION [None]
  - MALAISE [None]
